FAERS Safety Report 9769252 (Version 1)
Quarter: 2013Q4

REPORT INFORMATION
  Report Type: Spontaneous
  Country: GB (occurrence: None)
  Receive Date: 20131216
  Receipt Date: 20131216
  Transmission Date: 20140711
  Serious: Yes (Hospitalization)
  Sender: FDA-Public Use
  Company Number: AUR-APL-2013-10374

PATIENT
  Age: 75 Year
  Sex: Female

DRUGS (6)
  1. PIOGLITAZONE (PIOGLITAZONE) [Suspect]
     Indication: PRODUCT USED FOR UNKNOWN INDICATION
     Route: 048
     Dates: start: 20131106
  2. ADCAL-D3 (LEKOVIT CA) [Concomitant]
  3. ANASTROZOLE (ANASTROZOLE) [Concomitant]
  4. FUROSEMIDE (FUROSEMIDE) [Concomitant]
  5. GLUCOBAY [Concomitant]
  6. PERINDOPRIL ERBUMINE (PERINDOPRIL ERBUMINE) [Concomitant]

REACTIONS (3)
  - Renal impairment [None]
  - Renal failure acute [None]
  - Hepatic function abnormal [None]
